FAERS Safety Report 16158845 (Version 1)
Quarter: 2019Q2

REPORT INFORMATION
  Report Type: Spontaneous
  Country: FR (occurrence: FR)
  Receive Date: 20190404
  Receipt Date: 20190404
  Transmission Date: 20190711
  Serious: Yes (Death)
  Sender: FDA-Public Use
  Company Number: FR-ALLERGAN-1914701US

PATIENT
  Sex: Female

DRUGS (2)
  1. BOTOX [Suspect]
     Active Substance: ONABOTULINUMTOXINA
     Indication: MUSCLE SPASTICITY
     Dosage: UNK, SINGLE
     Route: 030
  2. DIAZEPAM. [Suspect]
     Active Substance: DIAZEPAM
     Indication: MUSCLE SPASTICITY
     Dosage: UNK
     Route: 065

REACTIONS (3)
  - Respiratory failure [Fatal]
  - Botulism [Fatal]
  - Dysphagia [Fatal]
